FAERS Safety Report 5530624-X (Version None)
Quarter: 2007Q4

REPORT INFORMATION
  Report Type: 
  Country: None (occurrence: None)
  Receive Date: 20071130
  Receipt Date: 20071121
  Transmission Date: 20080405
  Serious: Yes (Other)
  Sender: FDA-Public Use
  Company Number: B0361192A

PATIENT
  Sex: Female

DRUGS (6)
  1. PAROXETINE HCL [Suspect]
     Route: 065
  2. ZOLPIDEM TARTRATE [Concomitant]
  3. BECLOMETHASONE DIPROPIONATE [Concomitant]
  4. ALBUTEROL [Concomitant]
  5. SALMETEROL [Concomitant]
  6. FLUTICASONE PROPIONATE [Concomitant]

REACTIONS (4)
  - DISORIENTATION [None]
  - DRUG WITHDRAWAL SYNDROME [None]
  - HEADACHE [None]
  - SUICIDAL IDEATION [None]
